FAERS Safety Report 15934613 (Version 1)
Quarter: 2019Q1

REPORT INFORMATION
  Report Type: Spontaneous
  Country: DE (occurrence: DE)
  Receive Date: 20190207
  Receipt Date: 20190207
  Transmission Date: 20190417
  Serious: Yes (Death)
  Sender: FDA-Public Use
  Company Number: PHHY2019DE002575

PATIENT
  Age: 59 Year
  Sex: Female
  Weight: 75 kg

DRUGS (6)
  1. SAR 650984 [Suspect]
     Active Substance: ISATUXIMAB
     Dosage: 790 MG, CYCLIC (790 MG, QCY)
     Route: 042
     Dates: start: 20181023, end: 20181023
  2. LENALIDOMIDE [Suspect]
     Active Substance: LENALIDOMIDE
     Indication: PLASMA CELL MYELOMA
     Dosage: 10 MG, QD
     Route: 048
     Dates: start: 20180605, end: 20181129
  3. CARFILZOMIB [Suspect]
     Active Substance: CARFILZOMIB
     Dosage: 51 MG, UNK
     Route: 065
     Dates: start: 20181024, end: 20181024
  4. DEXAMETHASONE. [Suspect]
     Active Substance: DEXAMETHASONE
     Indication: PLASMA CELL MYELOMA
     Dosage: 40 MG, QD
     Route: 048
     Dates: start: 20180605, end: 20181030
  5. CARFILZOMIB [Suspect]
     Active Substance: CARFILZOMIB
     Indication: PLASMA CELL MYELOMA
     Dosage: 51 MG, UNK
     Route: 042
     Dates: start: 20180605, end: 20180605
  6. SAR 650984 [Suspect]
     Active Substance: ISATUXIMAB
     Indication: PLASMA CELL MYELOMA
     Dosage: 790 MG, CYCLIC (790 MG, QCY)
     Route: 042
     Dates: start: 20180605, end: 20180605

REACTIONS (2)
  - General physical health deterioration [Fatal]
  - Multiple organ dysfunction syndrome [Fatal]

NARRATIVE: CASE EVENT DATE: 20181121
